FAERS Safety Report 8975497 (Version 1)
Quarter: 2012Q4

REPORT INFORMATION
  Report Type: 
  Country: US (occurrence: US)
  Receive Date: 20121219
  Receipt Date: 20121219
  Transmission Date: 20130627
  Serious: No
  Sender: FDA-Public Use
  Company Number: US-AMGEN-USASP2012072701

PATIENT
  Sex: Female

DRUGS (2)
  1. PROLIA [Suspect]
     Indication: OSTEOPOROSIS POSTMENOPAUSAL
     Dosage: UNK
  2. ANTINEOPLASTIC AGENTS [Concomitant]
     Indication: SKIN CANCER
     Dosage: UNK
     Route: 061

REACTIONS (2)
  - Skin reaction [Unknown]
  - Skin infection [Unknown]
